FAERS Safety Report 8218624-2 (Version None)
Quarter: 2012Q1

REPORT INFORMATION
  Report Type: 
  Country: None (occurrence: None)
  Receive Date: 20120319
  Receipt Date: 20120313
  Transmission Date: 20120608
  Serious: Yes (Hospitalization)
  Sender: FDA-Public Use
  Company Number: CA-B.I. PHARMACEUTICALS,INC./RIDGEFIELD-2012-CN-00581CN

PATIENT
  Sex: Male

DRUGS (1)
  1. PRADAXA [Suspect]

REACTIONS (2)
  - ATRIAL FIBRILLATION [None]
  - ATRIAL THROMBOSIS [None]
